FAERS Safety Report 6395003-4 (Version None)
Quarter: 2009Q4

REPORT INFORMATION
  Report Type: 
  Country: None (occurrence: None)
  Receive Date: 20091009
  Receipt Date: 20090916
  Transmission Date: 20100525
  Serious: No
  Sender: FDA-Public Use
  Company Number: US-BAYER-200932686NA

PATIENT
  Age: 69 Year
  Sex: Male

DRUGS (3)
  1. LEVITRA [Suspect]
     Indication: DRUG USE FOR UNKNOWN INDICATION
  2. CIALIS [Concomitant]
  3. VIAGRA [Concomitant]

REACTIONS (2)
  - EJACULATION FAILURE [None]
  - ERECTILE DYSFUNCTION [None]
